FAERS Safety Report 7496233-0 (Version None)
Quarter: 2011Q2

REPORT INFORMATION
  Report Type: 
  Country: None (occurrence: None)
  Receive Date: 20110523
  Receipt Date: 20110513
  Transmission Date: 20111010
  Serious: Yes (Hospitalization)
  Sender: FDA-Public Use
  Company Number: PHFR2011GB01481

PATIENT
  Sex: Male

DRUGS (1)
  1. CLOZARIL [Suspect]
     Route: 048
     Dates: start: 20080807

REACTIONS (3)
  - MALAISE [None]
  - HAEMOGLOBIN DECREASED [None]
  - RENAL MASS [None]
